FAERS Safety Report 14440333 (Version 1)
Quarter: 2018Q1

REPORT INFORMATION
  Report Type: Spontaneous
  Country: US (occurrence: US)
  Receive Date: 20180125
  Receipt Date: 20180125
  Transmission Date: 20180509
  Serious: No
  Sender: FDA-Public Use
  Company Number: US-ABBVIE-17K-163-1966281-00

PATIENT
  Sex: Female

DRUGS (1)
  1. HUMIRA [Suspect]
     Active Substance: ADALIMUMAB
     Indication: PRODUCT USED FOR UNKNOWN INDICATION
     Route: 058

REACTIONS (5)
  - Diarrhoea [Recovering/Resolving]
  - Proctalgia [Recovering/Resolving]
  - Condition aggravated [Recovering/Resolving]
  - Eating disorder [Recovering/Resolving]
  - Frequent bowel movements [Recovering/Resolving]
